FAERS Safety Report 25189718 (Version 1)
Quarter: 2025Q2

REPORT INFORMATION
  Report Type: Spontaneous
  Country: US (occurrence: US)
  Receive Date: 20250411
  Receipt Date: 20250411
  Transmission Date: 20250716
  Serious: No
  Sender: BAYER
  Company Number: US-BAYER-2025A045105

PATIENT
  Age: 78 Year
  Sex: Male

DRUGS (2)
  1. CLARITIN [Suspect]
     Active Substance: LORATADINE
     Indication: Productive cough
     Dosage: UNK UNK, 6ID, 2 TABLETS EVERY 4 HOURS
     Route: 048
  2. CLARITIN [Suspect]
     Active Substance: LORATADINE
     Indication: Rhinorrhoea

REACTIONS (2)
  - Extra dose administered [Recovered/Resolved]
  - Product use in unapproved indication [Recovering/Resolving]
